FAERS Safety Report 10228035 (Version 1)
Quarter: 2014Q2

REPORT INFORMATION
  Report Type: Spontaneous
  Country: FR (occurrence: FR)
  Receive Date: 20140610
  Receipt Date: 20140610
  Transmission Date: 20141212
  Serious: Yes (Hospitalization)
  Sender: FDA-Public Use
  Company Number: FR-PFIZER INC-2014152251

PATIENT
  Age: 84 Year
  Sex: Female
  Weight: 65 kg

DRUGS (9)
  1. TAHOR [Suspect]
     Dosage: 80 MG, 1X/DAY
     Route: 048
     Dates: start: 20140417, end: 20140512
  2. LAMALINE (FRANCE) [Suspect]
     Indication: HEADACHE
     Dosage: 6 DF, DAILY
     Route: 048
     Dates: end: 20140512
  3. PARACETAMOL [Suspect]
     Indication: HEADACHE
     Dosage: 1 G, 4X/DAY
     Route: 048
     Dates: end: 20140512
  4. INEXIUM /01479302/ [Concomitant]
     Dosage: 40 MG, 1X/DAY
  5. TRIATEC [Concomitant]
     Dosage: 10 MG, 1X/DAY
  6. CONTRAMAL [Concomitant]
     Dosage: 100 MG, 1X/DAY
  7. AMLODIPINE [Concomitant]
     Dosage: 5 MG, 1X/DAY
  8. BISOCE [Concomitant]
     Dosage: 1.25 MG, 1X/DAY
  9. DACRYOSERUM [Concomitant]
     Dosage: 5 ML, UNK

REACTIONS (8)
  - Pyrexia [Recovered/Resolved]
  - Hepatitis acute [Recovering/Resolving]
  - Eosinophilia [Not Recovered/Not Resolved]
  - Pyelonephritis acute [Unknown]
  - Nausea [Unknown]
  - Tinnitus [Unknown]
  - Photophobia [Unknown]
  - Dysuria [Unknown]
